FAERS Safety Report 9690560 (Version 1)
Quarter: 2013Q4

REPORT INFORMATION
  Report Type: Spontaneous
  Country: US (occurrence: None)
  Receive Date: 20131114
  Receipt Date: 20131114
  Transmission Date: 20140711
  Serious: Yes (Life-Threatening)
  Sender: FDA-Public Use
  Company Number: None

PATIENT
  Age: 56 Year
  Sex: Female
  Weight: 67.13 kg

DRUGS (2)
  1. ENBREL [Suspect]
     Dosage: SUBCUTANEOUS
  2. HUMIRA [Suspect]

REACTIONS (2)
  - Transitional cell carcinoma [None]
  - Bladder cancer [None]
